FAERS Safety Report 4735075-3 (Version None)
Quarter: 2005Q3

REPORT INFORMATION
  Report Type: 
  Country: None (occurrence: None)
  Receive Date: 20050804
  Receipt Date: 20050715
  Transmission Date: 20060218
  Serious: Yes (Death, Hospitalization)
  Sender: FDA-Public Use
  Company Number: USA0507102932

PATIENT
  Age: 69 Year
  Sex: Male

DRUGS (2)
  1. ZYPREXA [Suspect]
     Indication: SLEEP DISORDER
     Dates: start: 20021101
  2. CLARITIN [Concomitant]

REACTIONS (11)
  - CEREBRAL ISCHAEMIA [None]
  - CHOKING [None]
  - COLLAPSE OF LUNG [None]
  - DIABETES MELLITUS [None]
  - FEELING HOT [None]
  - FOREIGN BODY TRAUMA [None]
  - GASTROINTESTINAL CANDIDIASIS [None]
  - ISCHAEMIA [None]
  - PNEUMONIA [None]
  - RASH MACULAR [None]
  - RESPIRATORY MONILIASIS [None]
